FAERS Safety Report 5582401-1 (Version None)
Quarter: 2007Q4

REPORT INFORMATION
  Report Type: 
  Country: None (occurrence: None)
  Receive Date: 20071130
  Receipt Date: 20070815
  Transmission Date: 20080405
  Serious: Yes (Hospitalization)
  Sender: FDA-Public Use
  Company Number: BDI-009836

PATIENT
  Sex: Female

DRUGS (3)
  1. ISOVUE-370 [Suspect]
     Indication: COMPUTERISED TOMOGRAM ABDOMEN
     Dosage: 100 ML ONCE IV
     Route: 042
     Dates: start: 20070617, end: 20070717
  2. ISOVUE-370 [Suspect]
     Indication: COMPUTERISED TOMOGRAM THORAX
     Dosage: 100 ML ONCE IV
     Route: 042
     Dates: start: 20070617, end: 20070717
  3. CHEMOTHERAPY [Concomitant]

REACTIONS (1)
  - ANAPHYLACTOID REACTION [None]
